FAERS Safety Report 11529317 (Version 5)
Quarter: 2015Q4

REPORT INFORMATION
  Report Type: Spontaneous
  Country: IT (occurrence: IT)
  Receive Date: 20150921
  Receipt Date: 20151126
  Transmission Date: 20160304
  Serious: Yes (Hospitalization, Other)
  Sender: FDA-Public Use
  Company Number: IT-BRISTOL-MYERS SQUIBB COMPANY-BMS-2015-063480

PATIENT
  Age: 70 Year
  Sex: Female
  Weight: 58 kg

DRUGS (5)
  1. ERBITUX [Suspect]
     Active Substance: CETUXIMAB
     Indication: RECTAL CANCER STAGE IV
     Dosage: 250 MG/M2, QWK
     Route: 042
     Dates: start: 20130918
  2. CAPECITABINE. [Concomitant]
     Active Substance: CAPECITABINE
     Dosage: UNK
     Route: 065
     Dates: start: 20150825
  3. CAPECITABINE. [Concomitant]
     Active Substance: CAPECITABINE
     Indication: RECTAL CANCER STAGE IV
     Dosage: 500 MG, UNK
     Route: 048
     Dates: start: 20131017, end: 20131212
  4. IRINOTECAN [Concomitant]
     Active Substance: IRINOTECAN
     Indication: RECTAL CANCER STAGE IV
     Dosage: 180 MG, UNK
     Route: 042
     Dates: start: 20130925, end: 20131127
  5. ERBITUX [Suspect]
     Active Substance: CETUXIMAB
     Dosage: 400 MG, UNK
     Route: 050
     Dates: start: 20150825

REACTIONS (4)
  - Varices oesophageal [Recovered/Resolved]
  - Malignant neoplasm progression [Unknown]
  - Portal hypertension [Recovered/Resolved]
  - Gastric haemorrhage [Recovered/Resolved]

NARRATIVE: CASE EVENT DATE: 20150713
